FAERS Safety Report 5089521-9 (Version None)
Quarter: 2006Q3

REPORT INFORMATION
  Report Type: 
  Country: None (occurrence: None)
  Receive Date: 20060822
  Receipt Date: 20060804
  Transmission Date: 20061208
  Serious: Yes (Hospitalization)
  Sender: FDA-Public Use
  Company Number: US_0506119635

PATIENT
  Age: 72 Year
  Sex: Female
  Weight: 89.1 kg

DRUGS (18)
  1. CYMBALTA [Suspect]
     Dates: start: 20050520, end: 20050525
  2. PRILOSEC [Concomitant]
  3. LISINOPRIL (LISINOPRIL /00894001) [Concomitant]
  4. CADUET [Concomitant]
  5. FUROSEMIDE [Concomitant]
  6. GLUCOTROL XL (GLIZIPIDE) [Concomitant]
  7. AVANDIA [Concomitant]
  8. HYDROCODONE W/APAP (HYDROCODONE W/APAP) [Concomitant]
  9. LEXAPRO [Concomitant]
  10. CLARITIN [Concomitant]
  11. CALCIUM W/VITAMIN D NOS (CALCIUM W/VITAMIN D NOS) [Concomitant]
  12. MULTIVITAMINS NOS (MULTIVITAMINS NOS) [Concomitant]
  13. LANTUS (INSULIN GLARGAINE) [Concomitant]
  14. XALATAN [Concomitant]
  15. DETROL LA (TOLTERODINE - TARTRATE) [Concomitant]
  16. AREDIA [Concomitant]
  17. LEVOXYL [Concomitant]
  18. VITAMINS, OTHER COMBINATIONS [Concomitant]

REACTIONS (6)
  - ABDOMINAL PAIN UPPER [None]
  - COGNITIVE DISORDER [None]
  - CONSTIPATION [None]
  - ERYTHEMA [None]
  - LARGE INTESTINAL HAEMORRHAGE [None]
  - RECTAL HAEMORRHAGE [None]
